FAERS Safety Report 18727868 (Version 1)
Quarter: 2021Q1

REPORT INFORMATION
  Report Type: Report from Study
  Country: None (occurrence: US)
  Receive Date: 20210112
  Receipt Date: 20210112
  Transmission Date: 20210419
  Serious: Yes (Hospitalization)
  Sender: FDA-Public Use
  Company Number: US-ABBVIE-21K-163-3721123-00

PATIENT
  Sex: Female

DRUGS (1)
  1. HUMIRA [Suspect]
     Active Substance: ADALIMUMAB
     Indication: PSORIASIS
     Route: 058
     Dates: start: 20191210

REACTIONS (8)
  - Alopecia [Not Recovered/Not Resolved]
  - Nausea [Unknown]
  - Respiratory failure [Recovered/Resolved]
  - Diarrhoea [Unknown]
  - Hepatic cirrhosis [Recovered/Resolved]
  - Loss of consciousness [Unknown]
  - Dizziness [Unknown]
  - Face injury [Unknown]

NARRATIVE: CASE EVENT DATE: 2020
